FAERS Safety Report 6075969-2 (Version None)
Quarter: 2009Q1

REPORT INFORMATION
  Report Type: 
  Country: None (occurrence: None)
  Receive Date: 20090212
  Receipt Date: 20090204
  Transmission Date: 20090719
  Serious: Yes (Other)
  Sender: FDA-Public Use
  Company Number: US-PURDUE-USA_2009_0036862

PATIENT
  Age: 79 Year
  Sex: Female

DRUGS (11)
  1. COLACE CAPSULES 100 MG [Suspect]
     Indication: CONSTIPATION
     Dosage: 3 CAPSL, NOCTE
     Route: 048
     Dates: start: 20090101, end: 20090207
  2. COLACE CAPSULES 100 MG [Suspect]
     Dosage: 4 CAPSL, DAILY
     Route: 048
     Dates: start: 20090207
  3. MINOXIDIL [Concomitant]
     Indication: HYPERTENSION
     Dosage: 2.5 MG, BID
     Route: 048
     Dates: start: 20090129
  4. CARVEDILOL [Concomitant]
     Indication: HYPERTENSION
     Dosage: 12.5 MG, DAILY
     Route: 048
     Dates: start: 20090129
  5. LASIX [Concomitant]
     Indication: HYPERTENSION
     Dosage: 20 MG, DAILY
     Route: 048
     Dates: start: 20090129
  6. CATAPRES                           /00171101/ [Concomitant]
     Indication: HYPERTENSION
     Dosage: 1 TABLET, TID
     Route: 048
  7. DARVOCET                           /00220901/ [Concomitant]
     Indication: ARTHRITIS
     Dosage: 2 TABLET, NOCTE
     Route: 048
  8. MORPHINE [Concomitant]
     Indication: ARTHRITIS
     Dosage: 50 MG, Q3D
     Route: 062
     Dates: start: 20081201
  9. AMLODIPINE                         /00972402/ [Concomitant]
     Indication: HYPERTENSION
     Dosage: 1 TABLET, DAILY
     Route: 048
     Dates: start: 20090129
  10. REGLAN [Concomitant]
     Indication: REFLUX OESOPHAGITIS
     Dosage: 1 TABLET, PRN
     Route: 048
  11. ELAVIL [Concomitant]
     Indication: DEPRESSION
     Dosage: 1 TABLET, NOCTE
     Route: 048

REACTIONS (1)
  - HYPERTENSION [None]
